FAERS Safety Report 20828164 (Version 1)
Quarter: 2022Q2

REPORT INFORMATION
  Report Type: Spontaneous
  Country: IT (occurrence: IT)
  Receive Date: 20220513
  Receipt Date: 20220513
  Transmission Date: 20220721
  Serious: Yes (Hospitalization, Other)
  Sender: FDA-Public Use
  Company Number: IT-ViiV Healthcare Limited-IT2022GSK075388

PATIENT

DRUGS (6)
  1. DOLUTEGRAVIR [Suspect]
     Active Substance: DOLUTEGRAVIR
     Indication: HIV infection
     Dosage: 50 MG, 1D
  2. TENOFOVIR DISOPROXIL FUMARATE [Suspect]
     Active Substance: TENOFOVIR DISOPROXIL FUMARATE
     Indication: HIV infection
     Dosage: UNK
  3. EMTRICITABINE [Suspect]
     Active Substance: EMTRICITABINE
     Indication: HIV infection
     Dosage: UNK
  4. DARUNAVIR\RITONAVIR [Suspect]
     Active Substance: DARUNAVIR\RITONAVIR
     Indication: HIV infection
     Dosage: UNK
  5. DARUNAVIR\RITONAVIR [Suspect]
     Active Substance: DARUNAVIR\RITONAVIR
     Dosage: 800/100 MG ONCE DAILY
  6. ETRAVIRINE [Suspect]
     Active Substance: ETRAVIRINE
     Indication: HIV infection
     Dosage: 200 MG, BID

REACTIONS (17)
  - Immune reconstitution inflammatory syndrome [Recovered/Resolved]
  - Tinea infection [Recovered/Resolved]
  - Trichophytosis [Recovered/Resolved]
  - Asthenia [Unknown]
  - Weight decreased [Unknown]
  - Pruritus [Recovered/Resolved]
  - Anaemia [Unknown]
  - Splenomegaly [Unknown]
  - Pyrexia [Unknown]
  - Productive cough [Unknown]
  - Virologic failure [Unknown]
  - Skin hyperpigmentation [Recovered/Resolved]
  - Skin lesion [Recovered/Resolved]
  - Skin exfoliation [Recovered/Resolved]
  - Erythema annulare [Recovered/Resolved]
  - Treatment noncompliance [Unknown]
  - Therapy cessation [Unknown]
